FAERS Safety Report 4657002-X (Version None)
Quarter: 2005Q2

REPORT INFORMATION
  Report Type: 
  Country: None (occurrence: None)
  Receive Date: 20050506
  Receipt Date: 20050422
  Transmission Date: 20051028
  Serious: Yes (Hospitalization)
  Sender: FDA-Public Use
  Company Number: L05-USA-01563-02

PATIENT
  Age: 58 Year
  Sex: Female

DRUGS (4)
  1. DILTIAZEM [Suspect]
     Dosage: 600 MG DAILY PO
     Route: 048
  2. ATENOLOL [Suspect]
     Dosage: 100 MG QD
  3. CAPTOPRIL [Suspect]
     Dosage: 50 MG BID
  4. HYDROCHLOROTHIAZIDE [Suspect]

REACTIONS (7)
  - ASTHENIA [None]
  - BLOOD GLUCOSE INCREASED [None]
  - BLOOD POTASSIUM INCREASED [None]
  - BLOOD PRESSURE DECREASED [None]
  - BRADYCARDIA [None]
  - NODAL RHYTHM [None]
  - SYNCOPE [None]
